FAERS Safety Report 5362868-4 (Version None)
Quarter: 2007Q2

REPORT INFORMATION
  Report Type: 
  Country: None (occurrence: None)
  Receive Date: 20070612
  Receipt Date: 20070612
  Transmission Date: 20071010
  Serious: Yes (Other)
  Sender: FDA-Public Use
  Company Number: 107#03#2007-01938

PATIENT
  Sex: Male

DRUGS (7)
  1. MIRTAZAPINE [Suspect]
     Indication: DEPRESSION
     Dosage: 1 DF (1 IN 1 D) ORAL
     Route: 048
     Dates: start: 20070514, end: 20070516
  2. ALENDRONIC ACID (ALENDRONIC ACID) [Concomitant]
  3. IBUPROFEN [Concomitant]
  4. LOPERAMIDE HYDROCHLORIDE (LOPERAMIDE) [Concomitant]
  5. MERCAPTOPURINE [Concomitant]
  6. PREDNISOLONE [Concomitant]
  7. VISCOTEARS (CARBOMER, CARBOMER 980) [Concomitant]

REACTIONS (3)
  - AGITATION [None]
  - AKATHISIA [None]
  - VISUAL BRIGHTNESS [None]
